FAERS Safety Report 4476447-4 (Version None)
Quarter: 2004Q4

REPORT INFORMATION
  Report Type: 
  Country: None (occurrence: None)
  Receive Date: 20041012
  Receipt Date: 20040928
  Transmission Date: 20050328
  Serious: Yes (Death, Hospitalization)
  Sender: FDA-Public Use
  Company Number: 208826

PATIENT
  Age: 52 Year
  Sex: Male

DRUGS (17)
  1. AVASTIN [Suspect]
     Indication: HEPATIC NEOPLASM MALIGNANT
     Dosage: Q3W
     Route: 042
     Dates: start: 20040826, end: 20040826
  2. OXALIPLATIN (OXALIPLATIN) [Suspect]
     Indication: HEPATIC NEOPLASM MALIGNANT
     Dosage: Q3W
     Dates: start: 20040826, end: 20040826
  3. CAPECITABINE (CAPECITABINE) [Suspect]
     Indication: HEPATIC NEOPLASM MALIGNANT
     Dosage: ORAL
     Route: 048
     Dates: start: 20040827, end: 20040828
  4. INSULIN [Concomitant]
  5. LOTREL [Concomitant]
  6. FENTANYL PATCH (FENTANYL CITRATE) [Concomitant]
  7. AMARYL [Concomitant]
  8. LASIX [Concomitant]
  9. ALPRAZOLAM [Concomitant]
  10. WELLBUTRIN [Concomitant]
  11. SPIRONOLACTONE [Concomitant]
  12. MULTI-VITAMINS [Concomitant]
  13. MARINOL [Concomitant]
  14. ZOFRAN [Concomitant]
  15. ATIVAN [Concomitant]
  16. BENADRYL [Concomitant]
  17. DECADRON [Concomitant]

REACTIONS (21)
  - AMMONIA INCREASED [None]
  - ASCITES [None]
  - BLOOD GLUCOSE INCREASED [None]
  - BLOOD MAGNESIUM DECREASED [None]
  - BLOOD POTASSIUM INCREASED [None]
  - BLOOD PRESSURE INCREASED [None]
  - DUODENAL ULCER PERFORATION [None]
  - GASTROINTESTINAL PERFORATION [None]
  - HAEMATOCRIT DECREASED [None]
  - HAEMOGLOBIN DECREASED [None]
  - HEART RATE INCREASED [None]
  - HEPATIC CIRRHOSIS [None]
  - MALIGNANT PERITONEAL NEOPLASM [None]
  - METASTASES TO ABDOMINAL CAVITY [None]
  - METASTASES TO LIVER [None]
  - NAUSEA [None]
  - PERITONITIS [None]
  - PNEUMOPERITONEUM [None]
  - PROTHROMBIN TIME PROLONGED [None]
  - RETCHING [None]
  - SEPSIS [None]
